APPROVED DRUG PRODUCT: LOSARTAN POTASSIUM
Active Ingredient: LOSARTAN POTASSIUM
Strength: 100MG
Dosage Form/Route: TABLET;ORAL
Application: A090467 | Product #003
Applicant: TORRENT PHARMACEUTICALS LTD
Approved: Oct 6, 2010 | RLD: No | RS: No | Type: DISCN